FAERS Safety Report 12919705 (Version 3)
Quarter: 2016Q4

REPORT INFORMATION
  Report Type: Spontaneous
  Country: US (occurrence: US)
  Receive Date: 20161108
  Receipt Date: 20161227
  Transmission Date: 20170207
  Serious: Yes (Hospitalization, Other)
  Sender: FDA-Public Use
  Company Number: US-PFIZER INC-2016515275

PATIENT
  Age: 69 Year
  Sex: Male

DRUGS (5)
  1. NOVOLOG MIX 70/30 [Concomitant]
     Active Substance: INSULIN ASPART
     Indication: TYPE 2 DIABETES MELLITUS
     Dosage: UNK (INSULIN ASPART 70), (PROTAMINE 30)
     Dates: start: 2010
  2. XANAX [Suspect]
     Active Substance: ALPRAZOLAM
     Indication: NERVOUS SYSTEM DISORDER
     Dosage: 10 MG, UNK
     Dates: start: 20000714
  3. XANAX [Suspect]
     Active Substance: ALPRAZOLAM
     Dosage: 0.01 MG, UNK
  4. XANAX [Suspect]
     Active Substance: ALPRAZOLAM
     Dosage: 20 MG, UNK
     Dates: start: 20000720
  5. XANAX [Suspect]
     Active Substance: ALPRAZOLAM
     Dosage: 10.0 MG, UNK
     Dates: start: 20000720

REACTIONS (3)
  - Overdose [Not Recovered/Not Resolved]
  - Neuralgia [Recovered/Resolved]
  - Feeling abnormal [Recovered/Resolved]
